FAERS Safety Report 17295504 (Version 3)
Quarter: 2023Q1

REPORT INFORMATION
  Report Type: Spontaneous
  Country: US (occurrence: US)
  Receive Date: 20200121
  Receipt Date: 20230112
  Transmission Date: 20230418
  Serious: Yes (Hospitalization, Other)
  Sender: FDA-Public Use
  Company Number: US-VERTEX PHARMACEUTICALS-2020-000693

PATIENT
  Sex: Female

DRUGS (43)
  1. TRIKAFTA [Suspect]
     Active Substance: ELEXACAFTOR\IVACAFTOR\TEZACAFTOR
     Indication: Cystic fibrosis
     Dosage: 2 TABLETS AM; 1 TABLET PM
     Route: 048
     Dates: start: 201911, end: 201912
  2. TRIKAFTA [Suspect]
     Active Substance: ELEXACAFTOR\IVACAFTOR\TEZACAFTOR
     Dosage: ONE TRIPLE THERAPY TABLET
     Route: 048
     Dates: start: 202001, end: 2020
  3. TRIKAFTA [Suspect]
     Active Substance: ELEXACAFTOR\IVACAFTOR\TEZACAFTOR
     Dosage: ONE AND A HALF TRIPLE THERAPY TABLETS WITH ONE AND A HALF IVACAFTOR 150 MG TABLETS IN AM
     Route: 048
     Dates: start: 2020, end: 2020
  4. TRIKAFTA [Suspect]
     Active Substance: ELEXACAFTOR\IVACAFTOR\TEZACAFTOR
     Dosage: TWO TRIPLE THERAPY TABLETS IN THE MORNING
     Route: 048
     Dates: start: 2020, end: 2020
  5. TRIKAFTA [Suspect]
     Active Substance: ELEXACAFTOR\IVACAFTOR\TEZACAFTOR
     Dosage: ONE IVACAFTOR 150 MG TABLET IN AM AND TWO TRIPLE THERAPY TABLETS IN PM
     Route: 048
     Dates: start: 202003, end: 2020
  6. TRIKAFTA [Suspect]
     Active Substance: ELEXACAFTOR\IVACAFTOR\TEZACAFTOR
     Dosage: TWO TRIPLE THERAPY TABLETS IN THE MORNING
     Route: 048
     Dates: start: 202006
  7. DULOXETINE [Suspect]
     Active Substance: DULOXETINE
     Indication: Major depression
     Route: 065
  8. DULOXETINE [Suspect]
     Active Substance: DULOXETINE
     Indication: Insomnia
  9. BUPROPION [Suspect]
     Active Substance: BUPROPION
     Indication: Depressed mood
     Dosage: 150 MG, QD
     Route: 065
     Dates: start: 2020, end: 2020
  10. BUPROPION [Suspect]
     Active Substance: BUPROPION
     Indication: Anxiety
  11. BUPROPION [Suspect]
     Active Substance: BUPROPION
     Indication: Insomnia
  12. BUPROPION [Suspect]
     Active Substance: BUPROPION
     Indication: Major depression
  13. SERTRALINE [Suspect]
     Active Substance: SERTRALINE HYDROCHLORIDE
     Indication: Depressed mood
     Dosage: 25 MG, QD
     Route: 065
  14. SERTRALINE [Suspect]
     Active Substance: SERTRALINE HYDROCHLORIDE
     Indication: Anxiety
     Dosage: 50 UNK
     Route: 065
     Dates: start: 201901
  15. SERTRALINE [Suspect]
     Active Substance: SERTRALINE HYDROCHLORIDE
     Indication: Attention deficit hyperactivity disorder
     Dosage: 75 MG, QD
     Route: 065
     Dates: start: 2020
  16. SERTRALINE [Suspect]
     Active Substance: SERTRALINE HYDROCHLORIDE
     Indication: Insomnia
     Dosage: 150 UNK
     Route: 065
     Dates: start: 2020
  17. SERTRALINE [Suspect]
     Active Substance: SERTRALINE HYDROCHLORIDE
     Indication: Major depression
  18. DIETARY SUPPLEMENT [Concomitant]
     Active Substance: DIETARY SUPPLEMENT
  19. CAYSTON [Concomitant]
     Active Substance: AZTREONAM
  20. AZITHROMYCIN [Concomitant]
     Active Substance: AZITHROMYCIN
  21. CETIRIZINE [Concomitant]
     Active Substance: CETIRIZINE HYDROCHLORIDE
  22. COLISTIMETHATE [Concomitant]
     Active Substance: COLISTIMETHATE SODIUM
  23. CREON [Concomitant]
     Active Substance: PANCRELIPASE AMYLASE\PANCRELIPASE LIPASE\PANCRELIPASE PROTEASE
  24. DEKASOFT [Concomitant]
  25. DEXTROAMPHETAMINE [Concomitant]
     Active Substance: DEXTROAMPHETAMINE
     Indication: Attention deficit hyperactivity disorder
  26. DICLOFENAC [Concomitant]
     Active Substance: DICLOFENAC
  27. DULCOLAX NOS [Concomitant]
     Active Substance: BISACODYL OR DOCUSATE SODIUM
  28. ERGOCALCIFEROL [Concomitant]
     Active Substance: ERGOCALCIFEROL
  29. FISH OIL [Concomitant]
     Active Substance: FISH OIL
  30. FLUTICASONE [Concomitant]
     Active Substance: FLUTICASONE
  31. OMEPRAZOLE [Concomitant]
     Active Substance: OMEPRAZOLE
  32. ONDANSETRON [Concomitant]
     Active Substance: ONDANSETRON
  33. PREDNISONE [Concomitant]
     Active Substance: PREDNISONE
  34. PULMOZYME [Concomitant]
     Active Substance: DORNASE ALFA
  35. SENNA [Concomitant]
     Active Substance: SENNA LEAF\SENNOSIDES\SENNOSIDES A AND B
  36. SYMBICORT [Concomitant]
     Active Substance: BUDESONIDE\FORMOTEROL FUMARATE DIHYDRATE
  37. TOBI PODHALER [Concomitant]
     Active Substance: TOBRAMYCIN
  38. QUETIAPINE FUMARATE [Concomitant]
     Active Substance: QUETIAPINE FUMARATE
     Indication: Insomnia
     Dosage: 100 MG AT BEDTIME
  39. QUETIAPINE FUMARATE [Concomitant]
     Active Substance: QUETIAPINE FUMARATE
     Dosage: 75 MG, AT BEDTIME
     Dates: start: 2020
  40. QUETIAPINE FUMARATE [Concomitant]
     Active Substance: QUETIAPINE FUMARATE
     Dosage: 100 MG, AT BEDTIME
     Dates: start: 2020
  41. FLOVENT [Concomitant]
     Active Substance: FLUTICASONE PROPIONATE
  42. CLONAZEPAM [Concomitant]
     Active Substance: CLONAZEPAM
     Indication: Anxiety
     Dosage: 0.5 MG, BID, PRN
  43. CLONAZEPAM [Concomitant]
     Active Substance: CLONAZEPAM
     Indication: Panic attack
     Dosage: 0.5 MG, TID
     Dates: start: 2020

REACTIONS (14)
  - Increased appetite [Unknown]
  - Emotional disorder [Unknown]
  - Affective disorder [Unknown]
  - Depressive symptom [Unknown]
  - Sleep paralysis [Not Recovered/Not Resolved]
  - Hypnopompic hallucination [Not Recovered/Not Resolved]
  - Anxiety [Not Recovered/Not Resolved]
  - Panic attack [Recovered/Resolved]
  - Depression [Not Recovered/Not Resolved]
  - Hypoaesthesia [Unknown]
  - Depressed mood [Unknown]
  - Suicidal ideation [Unknown]
  - Infective pulmonary exacerbation of cystic fibrosis [Unknown]
  - Drug interaction [Unknown]

NARRATIVE: CASE EVENT DATE: 20190101
